FAERS Safety Report 22758444 (Version 4)
Quarter: 2023Q4

REPORT INFORMATION
  Report Type: Report from Study
  Country: US (occurrence: US)
  Receive Date: 20230727
  Receipt Date: 20231226
  Transmission Date: 20240109
  Serious: No
  Sender: FDA-Public Use
  Company Number: US-ACADIA PHARMACEUTICALS INC.-ACA-2023-TRF-002735

PATIENT
  Age: 20 Year
  Sex: Female

DRUGS (12)
  1. DAYBUE [Suspect]
     Active Substance: TROFINETIDE
     Indication: Rett syndrome
     Dosage: 25 MILLILITER, BID
     Route: 048
  2. DAYBUE [Suspect]
     Active Substance: TROFINETIDE
     Dosage: 60 MILLILITER, BID
     Route: 048
  3. DAYBUE [Suspect]
     Active Substance: TROFINETIDE
     Dosage: 10 MILLILITER, BID
     Route: 048
  4. DAYBUE [Suspect]
     Active Substance: TROFINETIDE
     Dosage: 25 MILLILITER, BID
     Route: 048
  5. DAYBUE [Suspect]
     Active Substance: TROFINETIDE
     Dosage: 22 MILLILITER, BID
     Route: 048
  6. DAYBUE [Suspect]
     Active Substance: TROFINETIDE
     Dosage: 23 MILLILITER, BID
     Route: 048
  7. DAYBUE [Suspect]
     Active Substance: TROFINETIDE
     Dosage: 24 MILLILITER, BID
     Route: 048
  8. DAYBUE [Suspect]
     Active Substance: TROFINETIDE
     Dosage: 15 TO 20 MILLILITER
     Route: 065
  9. DAYBUE [Suspect]
     Active Substance: TROFINETIDE
     Dosage: 25 MILLILITER
     Route: 065
  10. DAYBUE [Suspect]
     Active Substance: TROFINETIDE
     Dosage: 26 MILLILITER BID
     Route: 048
  11. DAYBUE [Suspect]
     Active Substance: TROFINETIDE
     Dosage: 24 MILLILITER BID
     Route: 048
  12. MILK OF MAGNESIA [Suspect]
     Active Substance: MAGNESIUM HYDROXIDE

REACTIONS (15)
  - Increased appetite [Not Recovered/Not Resolved]
  - Aggression [Not Recovered/Not Resolved]
  - Constipation [Unknown]
  - Underdose [Not Recovered/Not Resolved]
  - Hunger [Unknown]
  - Dermatitis diaper [Not Recovered/Not Resolved]
  - Dermatitis diaper [Not Recovered/Not Resolved]
  - Irritability [Not Recovered/Not Resolved]
  - Behaviour disorder [Not Recovered/Not Resolved]
  - Anger [Not Recovered/Not Resolved]
  - Constipation [Unknown]
  - Diarrhoea [Not Recovered/Not Resolved]
  - Diarrhoea [Not Recovered/Not Resolved]
  - Diarrhoea [Not Recovered/Not Resolved]
  - Diarrhoea [Unknown]

NARRATIVE: CASE EVENT DATE: 20230630
